FAERS Safety Report 11554876 (Version 2)
Quarter: 2015Q4

REPORT INFORMATION
  Report Type: Spontaneous
  Country: US (occurrence: None)
  Receive Date: 20150925
  Receipt Date: 20151012
  Transmission Date: 20160304
  Serious: Yes (Hospitalization, Other)
  Sender: FDA-Public Use
  Company Number: ADR-2014-02342

PATIENT
  Sex: Female

DRUGS (2)
  1. BACLOFEN ORAL [Suspect]
     Active Substance: BACLOFEN
     Dosage: 20 MG TID
  2. LIORESAL [Suspect]
     Active Substance: BACLOFEN
     Indication: MUSCLE SPASTICITY
     Dosage: 750 MCG/DAY

REACTIONS (7)
  - Device malfunction [None]
  - Device leakage [None]
  - Altered state of consciousness [None]
  - Somnolence [None]
  - Device battery issue [None]
  - Drug withdrawal syndrome [None]
  - No therapeutic response [None]
